FAERS Safety Report 21028718 (Version 2)
Quarter: 2022Q3

REPORT INFORMATION
  Report Type: Spontaneous
  Country: BR (occurrence: BR)
  Receive Date: 20220630
  Receipt Date: 20220705
  Transmission Date: 20221026
  Serious: Yes (Other)
  Sender: FDA-Public Use
  Company Number: BR-TAKEDA-2022TUS043695

PATIENT
  Sex: Female

DRUGS (1)
  1. DEXILANT [Suspect]
     Active Substance: DEXLANSOPRAZOLE
     Indication: Product used for unknown indication
     Dosage: 60 MILLIGRAM, QD
     Route: 065

REACTIONS (8)
  - Choking [Unknown]
  - Therapy interrupted [Unknown]
  - Catatonia [Unknown]
  - Rhinitis [Unknown]
  - Dysarthria [Unknown]
  - Depressed mood [Unknown]
  - Confusional state [Unknown]
  - Headache [Unknown]
